FAERS Safety Report 8914859 (Version 1)
Quarter: 2012Q4

REPORT INFORMATION
  Report Type: 
  Country: ES (occurrence: ES)
  Receive Date: 20121116
  Receipt Date: 20121116
  Transmission Date: 20130627
  Serious: Yes (Other)
  Sender: FDA-Public Use
  Company Number: ES-SANOFI-AVENTIS-2012SA082202

PATIENT
  Age: 55 Year
  Sex: Female

DRUGS (5)
  1. CLEXANE [Suspect]
     Indication: PROPHYLAXIS
     Route: 058
     Dates: start: 20120520, end: 20120522
  2. AUGMENTINE [Suspect]
     Indication: RESPIRATORY TRACT INFECTION
     Dosage: The last 3 days 875 mg/ every 8 h orally.
     Route: 042
     Dates: start: 20120520, end: 20120524
  3. PANTOPRAZOLE [Concomitant]
     Indication: PROPHYLAXIS
     Route: 048
     Dates: start: 2011
  4. ADIRO [Concomitant]
     Indication: PROPHYLAXIS
     Route: 048
     Dates: start: 2011
  5. ATORVASTATIN [Concomitant]
     Indication: DYSLIPIDEMIA
     Route: 048
     Dates: start: 2011

REACTIONS (1)
  - Hepatitis [Recovered/Resolved]
